FAERS Safety Report 12632835 (Version 2)
Quarter: 2016Q3

REPORT INFORMATION
  Report Type: Spontaneous
  Country: US (occurrence: US)
  Receive Date: 20160808
  Receipt Date: 20160808
  Transmission Date: 20161109
  Serious: No
  Sender: FDA-Public Use
  Company Number: US-BEH-2015057169

PATIENT
  Sex: Male
  Weight: 65 kg

DRUGS (15)
  1. HIZENTRA [Suspect]
     Active Substance: HUMAN IMMUNOGLOBULIN G
     Route: 058
  2. HIZENTRA [Suspect]
     Active Substance: HUMAN IMMUNOGLOBULIN G
     Route: 058
  3. HIZENTRA [Suspect]
     Active Substance: HUMAN IMMUNOGLOBULIN G
     Indication: HYPOGLOBULINAEMIA
     Route: 058
  4. PREDNISONE. [Concomitant]
     Active Substance: PREDNISONE
  5. SINGULAIR [Concomitant]
     Active Substance: MONTELUKAST SODIUM
  6. MECLIZINE [Concomitant]
     Active Substance: MECLIZINE HYDROCHLORIDE
  7. ADVIL [Concomitant]
     Active Substance: IBUPROFEN
  8. HIZENTRA [Suspect]
     Active Substance: HUMAN IMMUNOGLOBULIN G
     Route: 058
  9. NASONEX [Concomitant]
     Active Substance: MOMETASONE FUROATE
  10. ANUSOL-HC CREAM [Concomitant]
  11. ASTELIN [Concomitant]
     Active Substance: AZELASTINE HYDROCHLORIDE
  12. ALLEGRA [Concomitant]
     Active Substance: FEXOFENADINE HYDROCHLORIDE
  13. TRIAMCINOLONE CREAM [Concomitant]
     Active Substance: TRIAMCINOLONE
  14. DIAZEPAM. [Concomitant]
     Active Substance: DIAZEPAM
  15. HIZENTRA [Suspect]
     Active Substance: HUMAN IMMUNOGLOBULIN G
     Route: 058

REACTIONS (1)
  - Nasopharyngitis [Recovered/Resolved]
